FAERS Safety Report 13343991 (Version 1)
Quarter: 2017Q1

REPORT INFORMATION
  Report Type: Report from Study
  Country: US (occurrence: US)
  Receive Date: 20170316
  Receipt Date: 20170316
  Transmission Date: 20170428
  Serious: Yes (Hospitalization)
  Sender: FDA-Public Use
  Company Number: PHEH2017US007160

PATIENT
  Age: 66 Year
  Sex: Female
  Weight: 97 kg

DRUGS (3)
  1. ENTRESTO [Suspect]
     Active Substance: SACUBITRIL\VALSARTAN
     Dosage: 100 MG, (49/51 MG) BID
     Route: 048
     Dates: start: 20170105, end: 20170210
  2. ENTRESTO [Suspect]
     Active Substance: SACUBITRIL\VALSARTAN
     Indication: CARDIOMYOPATHY
     Dosage: 50 MG,(24/26 MG) BID
     Route: 048
     Dates: start: 20161221, end: 20170104
  3. ENTRESTO [Suspect]
     Active Substance: SACUBITRIL\VALSARTAN
     Indication: CARDIAC FAILURE CONGESTIVE
     Dosage: 50 MG,(24/26 MG) QD
     Route: 048
     Dates: start: 20161207, end: 20161220

REACTIONS (13)
  - Red cell distribution width increased [Unknown]
  - Blood urea increased [Unknown]
  - Intra-abdominal fluid collection [Unknown]
  - Blood alkaline phosphatase increased [Unknown]
  - Red blood cell count increased [Unknown]
  - Cardiac failure [Recovering/Resolving]
  - Blood creatinine increased [Unknown]
  - Prescribed underdose [Unknown]
  - Blood sodium decreased [Unknown]
  - Haemoglobin decreased [Unknown]
  - Eosinophil count decreased [Unknown]
  - Blood chloride decreased [Unknown]
  - Blood potassium increased [Unknown]

NARRATIVE: CASE EVENT DATE: 20161207
